FAERS Safety Report 25683253 (Version 3)
Quarter: 2025Q3

REPORT INFORMATION
  Report Type: Spontaneous
  Country: EU (occurrence: EU)
  Receive Date: 20250814
  Receipt Date: 20250905
  Transmission Date: 20251021
  Serious: Yes (Other)
  Sender: PFIZER
  Company Number: EU-PFIZER INC-PV202500051653

PATIENT
  Age: 9 Month
  Sex: Male
  Weight: 9.3 kg

DRUGS (2)
  1. XALKORI [Suspect]
     Active Substance: CRIZOTINIB
     Indication: Abdominal neoplasm
     Dosage: 120 MG, 2X/DAY (2 CAPSULES OF 50 MG AND 1 OF 20MG IN THE MORNING AND EVENING
  2. XALKORI [Suspect]
     Active Substance: CRIZOTINIB
     Dosage: 100 MG AT THE MORNING AND 100 MG AT THE EVENING

REACTIONS (4)
  - Hepatic cytolysis [Recovered/Resolved]
  - Asthenia [Unknown]
  - Hepatic function abnormal [Unknown]
  - Off label use [Unknown]

NARRATIVE: CASE EVENT DATE: 20250520
